FAERS Safety Report 9908852 (Version 1)
Quarter: 2014Q1

REPORT INFORMATION
  Report Type: Report from Study
  Country: TR (occurrence: TR)
  Receive Date: 20140219
  Receipt Date: 20140219
  Transmission Date: 20141002
  Serious: Yes (Death)
  Sender: FDA-Public Use
  Company Number: TR-ASTELLAS-2014EU001282

PATIENT
  Age: 22 Year
  Sex: Male
  Weight: 80 kg

DRUGS (1)
  1. TACROLIMUS MR4 CAPSULES [Suspect]
     Dosage: 3 MG, UID/QD
     Route: 048
     Dates: start: 20130904

REACTIONS (1)
  - Sudden death [Fatal]
